FAERS Safety Report 15596785 (Version 2)
Quarter: 2018Q4

REPORT INFORMATION
  Report Type: Spontaneous
  Country: US (occurrence: US)
  Receive Date: 20181108
  Receipt Date: 20181121
  Transmission Date: 20190205
  Serious: No
  Sender: FDA-Public Use
  Company Number: US-APOTEX-2018AP015938

PATIENT
  Sex: Female

DRUGS (1)
  1. OMEGA 3 ACID ETHYL ESTERS [Suspect]
     Active Substance: OMEGA-3-ACID ETHYL ESTERS
     Indication: PRODUCT USED FOR UNKNOWN INDICATION
     Dosage: 1000 MG, UNK
     Route: 048

REACTIONS (13)
  - Erythema [Unknown]
  - Alopecia [Unknown]
  - Adverse reaction [Unknown]
  - Skin exfoliation [Unknown]
  - Swelling [Unknown]
  - Skin discolouration [Unknown]
  - Agitation [Unknown]
  - Drug ineffective [Unknown]
  - Scratch [Unknown]
  - Scab [Unknown]
  - Injury [Unknown]
  - Skin ulcer [Unknown]
  - Product substitution issue [Unknown]
